FAERS Safety Report 16389895 (Version 1)
Quarter: 2019Q2

REPORT INFORMATION
  Report Type: Report from Study
  Country: ES (occurrence: ES)
  Receive Date: 20190604
  Receipt Date: 20190604
  Transmission Date: 20190711
  Serious: Yes (Other)
  Sender: FDA-Public Use
  Company Number: ES-PURDUE-GBR-2019-0066872

PATIENT
  Age: 74 Year
  Sex: Female

DRUGS (28)
  1. MORPHINE [Suspect]
     Active Substance: MORPHINE
     Indication: ANALGESIC THERAPY
     Dosage: UNK
     Route: 042
     Dates: start: 2016
  2. FENTANYL. [Suspect]
     Active Substance: FENTANYL
     Dosage: 75 UNK, UNK
     Route: 062
     Dates: start: 2018
  3. FENTANYL. [Suspect]
     Active Substance: FENTANYL
     Dosage: 100 MCG, UNK (100 UG)
     Route: 060
     Dates: start: 2016
  4. LIDOCAINE. [Concomitant]
     Active Substance: LIDOCAINE
     Indication: ANALGESIC THERAPY
     Dosage: UNKNOWN
     Route: 065
     Dates: start: 2018
  5. IRINOTECAN [Concomitant]
     Active Substance: IRINOTECAN
     Indication: RECTAL ADENOCARCINOMA
     Dosage: 1 UNK, 2/WEEK (1X/2 WEEKS)
     Route: 065
  6. DEXKETOPROFEN [Concomitant]
     Active Substance: DEXKETOPROFEN
     Indication: ANALGESIC THERAPY
     Dosage: 25 MG, Q8H
     Route: 065
     Dates: start: 2014
  7. FENTANYL. [Suspect]
     Active Substance: FENTANYL
     Dosage: 50 UNK, UNK
     Route: 062
     Dates: start: 2017
  8. 5-FLUOROURACIL                     /00098801/ [Concomitant]
     Active Substance: FLUOROURACIL
     Indication: RECTAL ADENOCARCINOMA
     Dosage: UNKNOWN
     Route: 065
  9. PREGABALIN. [Concomitant]
     Active Substance: PREGABALIN
     Indication: ANALGESIC THERAPY
     Dosage: 75 MG, Q12H
     Route: 065
  10. DULOXETINE. [Concomitant]
     Active Substance: DULOXETINE
     Indication: ANALGESIC THERAPY
     Dosage: 60 MG, Q12H (60 MG EVERY 12 HOURS)
     Route: 065
     Dates: start: 2018
  11. LEUCOVORIN                         /00566701/ [Concomitant]
     Active Substance: LEUCOVORIN
     Dosage: UNKNOWN
     Route: 065
  12. MORPHINE SULFATE. [Suspect]
     Active Substance: MORPHINE SULFATE
     Indication: PRODUCT USED FOR UNKNOWN INDICATION
     Dosage: 180 MG, Q24H (180 MG IN 24 HOURS)
     Route: 065
  13. FENTANYL. [Suspect]
     Active Substance: FENTANYL
     Indication: ANALGESIC THERAPY
     Dosage: 50 (REDUCING DOSE UP TO A DOSE OF 50)
     Route: 062
     Dates: start: 2017
  14. FENTANYL. [Suspect]
     Active Substance: FENTANYL
     Dosage: 100 UNK, UNK
     Route: 062
     Dates: start: 201705
  15. FENTANYL. [Suspect]
     Active Substance: FENTANYL
     Dosage: 50 UNK, UNK
     Route: 062
     Dates: start: 2016
  16. IRINOTECAN [Concomitant]
     Active Substance: IRINOTECAN
     Dosage: DOSE REDUCTION UP TO 60 PERCENT
     Route: 065
     Dates: start: 201701
  17. DEXAMETHASONE. [Concomitant]
     Active Substance: DEXAMETHASONE
     Indication: PRODUCT USED FOR UNKNOWN INDICATION
     Dosage: UNK
     Route: 065
  18. FENTANYL. [Suspect]
     Active Substance: FENTANYL
     Dosage: 125 UNK, UNK
     Route: 062
     Dates: start: 201901
  19. FENTANYL. [Suspect]
     Active Substance: FENTANYL
     Dosage: 100 UNK, UNK
     Route: 062
  20. FENTANYL. [Suspect]
     Active Substance: FENTANYL
     Dosage: 6 UNK, DAILY (6 RESCUES DAILY)
     Route: 060
     Dates: start: 2016
  21. 5-FLUOROURACIL                     /00098801/ [Concomitant]
     Active Substance: FLUOROURACIL
     Dosage: 1 UNK, 2/WEEK (FORENIGHTLY)
     Route: 065
     Dates: start: 2018
  22. METAMIZOLE [Concomitant]
     Active Substance: METAMIZOLE
     Indication: ANALGESIC THERAPY
     Dosage: 575 MG, Q8H
     Route: 065
     Dates: start: 2014
  23. FENTANYL. [Suspect]
     Active Substance: FENTANYL
     Dosage: 125 UNK, UNK
     Route: 062
     Dates: start: 2018
  24. FENTANYL. [Suspect]
     Active Substance: FENTANYL
     Indication: BREAKTHROUGH PAIN
     Dosage: UNK TABLET, DAILY (1-2 RESUCES PER DAY)
     Route: 060
  25. FENTANYL. [Suspect]
     Active Substance: FENTANYL
     Dosage: SINGLE DAILY RESCUE PER EPISODE OF INCIDENTAL VOLITIONAL IOD
     Route: 060
  26. FENTANYL. [Suspect]
     Active Substance: FENTANYL
     Dosage: 5 UNK, DAILY (5 RESCUES DAILY)
     Route: 060
     Dates: start: 201705
  27. LEUCOVORIN                         /00566701/ [Concomitant]
     Active Substance: LEUCOVORIN
     Indication: RECTAL ADENOCARCINOMA
     Dosage: 1 UNK, 2/WEEK (FORENIGHTLY)
     Route: 065
     Dates: start: 2018
  28. MORPHINE [Suspect]
     Active Substance: MORPHINE
     Indication: PRODUCT USED FOR UNKNOWN INDICATION
     Dosage: 5 MG, UNK
     Route: 058
     Dates: start: 2016

REACTIONS (5)
  - Myoclonus [Unknown]
  - Somnolence [Unknown]
  - Dry mouth [Unknown]
  - Nausea [Unknown]
  - Hallucination [Unknown]

NARRATIVE: CASE EVENT DATE: 201705
